FAERS Safety Report 12998353 (Version 1)
Quarter: 2016Q4

REPORT INFORMATION
  Report Type: Spontaneous
  Country: US (occurrence: US)
  Receive Date: 20161202
  Receipt Date: 20161202
  Transmission Date: 20170207
  Serious: No
  Sender: FDA-Public Use
  Company Number: None

PATIENT
  Age: 67 Year
  Sex: Male

DRUGS (1)
  1. CAPECITABINE 500MGS [Suspect]
     Active Substance: CAPECITABINE

REACTIONS (2)
  - Pain in extremity [None]
  - Neuropathy peripheral [None]

NARRATIVE: CASE EVENT DATE: 20161130
